FAERS Safety Report 7462030-5 (Version None)
Quarter: 2011Q2

REPORT INFORMATION
  Report Type: 
  Country: None (occurrence: None)
  Receive Date: 20110506
  Receipt Date: 20081105
  Transmission Date: 20111010
  Serious: Yes (Other)
  Sender: FDA-Public Use
  Company Number: US-BAYER-2011-006452

PATIENT
  Age: 50 Year
  Sex: Male
  Weight: 91.61 kg

DRUGS (12)
  1. HEPARIN [Concomitant]
     Dosage: 9000 U, UNK
     Route: 042
     Dates: start: 19990730
  2. ANCEF [Concomitant]
     Dosage: 1 G, UNK
     Route: 042
     Dates: start: 19990730
  3. TRACRIUM [Concomitant]
     Dosage: 80 MG, UNK
     Route: 042
     Dates: start: 19990730
  4. ATENOLOL [Concomitant]
     Dosage: UNK
     Route: 048
     Dates: start: 19990101
  5. TRASYLOL [Suspect]
     Indication: ENDARTERECTOMY
  6. LIPITOR [Concomitant]
     Dosage: UNK
     Route: 048
     Dates: start: 19990101
  7. VERSED [Concomitant]
     Dosage: UNK
     Route: 042
     Dates: start: 19990730
  8. TRASYLOL [Suspect]
     Indication: AORTIC BYPASS
     Dosage: UNK
     Route: 042
     Dates: start: 19990701
  9. ANECTINE [Concomitant]
     Dosage: UNK
     Route: 042
     Dates: start: 19990730
  10. NEOSTIGMINE [Concomitant]
     Dosage: UNK
     Route: 042
     Dates: start: 19990730
  11. TRASYLOL [Suspect]
     Indication: THROMBOEMBOLECTOMY
  12. TOPROL-XL [Concomitant]
     Dosage: UNK
     Route: 048
     Dates: start: 19990101

REACTIONS (10)
  - ANXIETY [None]
  - STRESS [None]
  - INJURY [None]
  - EMOTIONAL DISTRESS [None]
  - UNEVALUABLE EVENT [None]
  - RENAL FAILURE [None]
  - RENAL INJURY [None]
  - RENAL IMPAIRMENT [None]
  - PAIN [None]
  - FEAR [None]
